FAERS Safety Report 19219253 (Version 1)
Quarter: 2021Q2

REPORT INFORMATION
  Report Type: Spontaneous
  Country: US (occurrence: US)
  Receive Date: 20210506
  Receipt Date: 20210506
  Transmission Date: 20210717
  Serious: No
  Sender: FDA-Public Use
  Company Number: US-ROCHE-2612610

PATIENT
  Sex: Female

DRUGS (2)
  1. PLAVIX [Concomitant]
     Active Substance: CLOPIDOGREL BISULFATE
  2. ESBRIET [Suspect]
     Active Substance: PIRFENIDONE
     Indication: IDIOPATHIC PULMONARY FIBROSIS
     Route: 048
     Dates: start: 20200331, end: 20200717

REACTIONS (8)
  - Dyspepsia [Recovered/Resolved]
  - Erythema [Unknown]
  - Abdominal discomfort [Recovered/Resolved]
  - Pruritus [Unknown]
  - Skin discolouration [Unknown]
  - Rash [Recovered/Resolved]
  - Insomnia [Unknown]
  - Sensory disturbance [Unknown]
